FAERS Safety Report 25806543 (Version 2)
Quarter: 2025Q3

REPORT INFORMATION
  Report Type: Spontaneous
  Country: BR (occurrence: BR)
  Receive Date: 20250916
  Receipt Date: 20250919
  Transmission Date: 20251021
  Serious: Yes (Other)
  Sender: SANDOZ
  Company Number: BR-SANDOZ-SDZ2024BR090539

PATIENT
  Sex: Female

DRUGS (10)
  1. FULVESTRANT [Suspect]
     Active Substance: FULVESTRANT
     Indication: Product used for unknown indication
     Route: 065
  2. FUROSEMIDE [Suspect]
     Active Substance: FUROSEMIDE
     Indication: Product used for unknown indication
     Route: 065
  3. KISQALI [Suspect]
     Active Substance: RIBOCICLIB SUCCINATE
     Dosage: 2 TABLET A DAY
     Route: 065
  4. KISQALI [Suspect]
     Active Substance: RIBOCICLIB SUCCINATE
     Route: 065
  5. KISQALI [Suspect]
     Active Substance: RIBOCICLIB SUCCINATE
     Route: 065
  6. KISQALI [Suspect]
     Active Substance: RIBOCICLIB SUCCINATE
     Indication: Nodule
     Route: 065
  7. LOSARTAN [Suspect]
     Active Substance: LOSARTAN
     Indication: Product used for unknown indication
     Route: 065
  8. VITAMIN B3 [Suspect]
     Active Substance: NIACIN
     Indication: Product used for unknown indication
     Route: 065
  9. VITAMIN B12 [Suspect]
     Active Substance: CYANOCOBALAMIN
     Indication: Product used for unknown indication
     Route: 065
  10. ZOMETA [Suspect]
     Active Substance: ZOLEDRONIC ACID
     Indication: Product used for unknown indication
     Route: 065

REACTIONS (14)
  - Blood potassium increased [Unknown]
  - Burning sensation [Recovered/Resolved]
  - Skin exfoliation [Unknown]
  - Benign uterine neoplasm [Recovering/Resolving]
  - Dry skin [Recovered/Resolved]
  - Wound [Unknown]
  - Memory impairment [Unknown]
  - Erythema [Recovered/Resolved]
  - Diarrhoea [Unknown]
  - Back pain [Recovered/Resolved]
  - Rash macular [Recovered/Resolved]
  - Pruritus [Not Recovered/Not Resolved]
  - Malaise [Unknown]
  - Product dose omission issue [Unknown]
